FAERS Safety Report 23597404 (Version 1)
Quarter: 2024Q1

REPORT INFORMATION
  Report Type: Spontaneous
  Country: SE (occurrence: SE)
  Receive Date: 20240305
  Receipt Date: 20240305
  Transmission Date: 20240409
  Serious: Yes (Other)
  Sender: FDA-Public Use
  Company Number: None

PATIENT
  Age: 21 Year
  Sex: Female
  Weight: 59 kg

DRUGS (1)
  1. VENLAFAXINE HYDROCHLORIDE [Suspect]
     Active Substance: VENLAFAXINE HYDROCHLORIDE
     Indication: Depression
     Dosage: 3 CAPSULES 1 TIME A DAY
     Route: 048

REACTIONS (18)
  - Seizure [Unknown]
  - Nightmare [Unknown]
  - Nausea [Unknown]
  - Electric shock sensation [Unknown]
  - Tremor [Unknown]
  - Feeling drunk [Unknown]
  - Withdrawal syndrome [Unknown]
  - Stress [Unknown]
  - Hyperhidrosis [Unknown]
  - Tinnitus [Unknown]
  - Product dose omission in error [Unknown]
  - Asthenia [Unknown]
  - Anxiety [Unknown]
  - Vertigo [Unknown]
  - Panic attack [Unknown]
  - Blindness [Unknown]
  - Insomnia [Unknown]
  - Confusional state [Unknown]

NARRATIVE: CASE EVENT DATE: 20230326
